FAERS Safety Report 7806822-9 (Version None)
Quarter: 2011Q4

REPORT INFORMATION
  Report Type: 
  Country: None (occurrence: None)
  Receive Date: 20111011
  Receipt Date: 20111004
  Transmission Date: 20120403
  Serious: Yes (Death, Other)
  Sender: FDA-Public Use
  Company Number: US-ELI_LILLY_AND_COMPANY-US201110000801

PATIENT
  Sex: Female

DRUGS (4)
  1. ALIMTA [Suspect]
     Indication: NON-SMALL CELL LUNG CANCER
     Dosage: 500 MG/M2, UNK
     Dates: start: 20110920, end: 20110920
  2. ATENOLOL [Concomitant]
     Indication: BLOOD PRESSURE
     Dosage: 25 MG, UNK
  3. CARBOPLATIN [Concomitant]
     Indication: NON-SMALL CELL LUNG CANCER
     Dosage: 500 MG/M2, UNK
     Dates: start: 20110920, end: 20110929
  4. ASPIRIN [Concomitant]

REACTIONS (6)
  - VENTRICULAR ARRHYTHMIA [None]
  - ABDOMINAL PAIN [None]
  - CARDIAC ARREST [None]
  - ATRIAL FIBRILLATION [None]
  - PANCYTOPENIA [None]
  - DIARRHOEA [None]
